FAERS Safety Report 8944163 (Version 1)
Quarter: 2012Q4

REPORT INFORMATION
  Report Type: 
  Country: CN (occurrence: CN)
  Receive Date: 20121204
  Receipt Date: 20121204
  Transmission Date: 20130627
  Serious: Yes (Other)
  Sender: FDA-Public Use
  Company Number: CN-ABBOTT-12P-035-1016719-00

PATIENT
  Age: 4 Year
  Sex: Female

DRUGS (1)
  1. EPILIM [Suspect]
     Indication: EPILEPSY
     Route: 048
     Dates: start: 201107

REACTIONS (2)
  - Trismus [Unknown]
  - Epilepsy [Recovered/Resolved]
